FAERS Safety Report 23098194 (Version 1)
Quarter: 2023Q4

REPORT INFORMATION
  Report Type: Spontaneous
  Country: US (occurrence: None)
  Receive Date: 20231020
  Receipt Date: 20231020
  Transmission Date: 20240110
  Serious: Yes (Hospitalization)
  Sender: FDA-Public Use
  Company Number: None

PATIENT
  Age: 63 Year
  Sex: Female

DRUGS (2)
  1. DROXIDOPA [Suspect]
     Active Substance: DROXIDOPA
     Indication: Orthostatic hypotension
     Dosage: FREQUENCY : 3 TIMES A DAY;?
     Route: 048
     Dates: start: 202108
  2. INGREZZA [Concomitant]
     Active Substance: VALBENAZINE

REACTIONS (2)
  - Cardiac failure congestive [None]
  - Post-acute COVID-19 syndrome [None]

NARRATIVE: CASE EVENT DATE: 20231011
